APPROVED DRUG PRODUCT: AZELAIC ACID
Active Ingredient: AZELAIC ACID
Strength: 15%
Dosage Form/Route: GEL;TOPICAL
Application: A210549 | Product #001 | TE Code: AB
Applicant: SUN PHARMA CANADA INC
Approved: Aug 23, 2019 | RLD: No | RS: No | Type: RX